FAERS Safety Report 21913509 (Version 1)
Quarter: 2023Q1

REPORT INFORMATION
  Report Type: Spontaneous
  Country: CN (occurrence: CN)
  Receive Date: 20230125
  Receipt Date: 20230125
  Transmission Date: 20230417
  Serious: Yes (Hospitalization, Other)
  Sender: FDA-Public Use
  Company Number: None

PATIENT
  Age: 34 Year
  Sex: Female
  Weight: 52.7 kg

DRUGS (8)
  1. CYCLOPHOSPHAMIDE [Suspect]
     Active Substance: CYCLOPHOSPHAMIDE
     Indication: Breast neoplasm
     Dosage: DILUTED WITH SODIUM CHLORIDE, Q21D, 1ST TO 2ND CYCLE CHEMOTHERAPY
     Route: 042
     Dates: start: 20221105
  2. CYCLOPHOSPHAMIDE [Suspect]
     Active Substance: CYCLOPHOSPHAMIDE
     Indication: Breast cancer stage I
     Dosage: 0.9 G, Q21D, DILUTED WITH 50 ML OF 0.9% SODIUM CHLORIDE, 3RD CYCLE
     Route: 042
     Dates: start: 20221219, end: 20221219
  3. SODIUM CHLORIDE [Suspect]
     Active Substance: SODIUM CHLORIDE
     Indication: Medication dilution
     Dosage: USED TO DILUTE CYCLOPOSPHAMIDE, Q21D, 1ST TO 2ND CYCLE OF CHEMOTHERAPY
     Route: 042
     Dates: start: 20221105
  4. SODIUM CHLORIDE [Suspect]
     Active Substance: SODIUM CHLORIDE
     Dosage: USED TO DILUTE DOXORUBICIN, Q21D, 1ST TO 2ND CYCLE OF CHEMOTHERAPY
     Route: 042
     Dates: start: 20221105
  5. SODIUM CHLORIDE [Suspect]
     Active Substance: SODIUM CHLORIDE
     Dosage: 50 ML, Q21D, USED TO DILUTE 0.9 G CYCLOPHOSPHAMIDE
     Route: 042
     Dates: start: 20221219, end: 20221219
  6. SODIUM CHLORIDE [Suspect]
     Active Substance: SODIUM CHLORIDE
     Dosage: 50 ML, Q21D, USED TO DILUTE 44 MG DOXORUBICIN HYDROCHLORIDE LIPOSOME
     Route: 042
     Dates: start: 20221218, end: 20221218
  7. DOXORUBICIN HYDROCHLORIDE [Suspect]
     Active Substance: DOXORUBICIN HYDROCHLORIDE
     Indication: Breast neoplasm
     Dosage: USED TO DILUTE SODIUM CHLROIDE, Q21D,1ST TO 2ND CYCLE CHEMOTHERAPY
     Route: 042
     Dates: start: 20221105
  8. DOXORUBICIN HYDROCHLORIDE [Suspect]
     Active Substance: DOXORUBICIN HYDROCHLORIDE
     Indication: Breast cancer stage I
     Dosage: 44 MG, Q21D, DILUTED WITH 50 ML OF 0.9% SODIUM CHLORIDE
     Route: 042
     Dates: start: 20221218, end: 20221218

REACTIONS (1)
  - Agranulocytosis [Recovering/Resolving]

NARRATIVE: CASE EVENT DATE: 20230109
